FAERS Safety Report 6243966-X (Version None)
Quarter: 2009Q2

REPORT INFORMATION
  Report Type: 
  Country: None (occurrence: None)
  Receive Date: 20090623
  Receipt Date: 20090609
  Transmission Date: 20091009
  Serious: Yes (Hospitalization)
  Sender: FDA-Public Use
  Company Number: 2008-183939-NL

PATIENT
  Age: 33 Year
  Sex: Female
  Weight: 77.1 kg

DRUGS (2)
  1. NUVARING [Suspect]
     Indication: CONTRACEPTION
     Dosage: 3 WEEKS IN; 1 WEEK OUT
     Dates: start: 20060801, end: 20070101
  2. ADVIL [Concomitant]

REACTIONS (5)
  - BACK PAIN [None]
  - BRONCHITIS [None]
  - PLEURAL EFFUSION [None]
  - PULMONARY EMBOLISM [None]
  - WEIGHT INCREASED [None]
